FAERS Safety Report 7249032-9 (Version None)
Quarter: 2011Q1

REPORT INFORMATION
  Report Type: 
  Country: None (occurrence: None)
  Receive Date: 20110128
  Receipt Date: 20101108
  Transmission Date: 20110831
  Serious: Yes (Hospitalization)
  Sender: FDA-Public Use
  Company Number: US-BAYER-201031208NA

PATIENT
  Sex: Female
  Weight: 78.458 kg

DRUGS (14)
  1. ACIPHEX [Concomitant]
     Indication: PRODUCT USED FOR UNKNOWN INDICATION
  2. BENADRYL [Concomitant]
     Indication: HYPERSENSITIVITY
     Dosage: UNK UNK, QD
  3. ACIPHEX [Concomitant]
     Indication: HIATUS HERNIA
  4. ZYRTEC [Concomitant]
     Indication: SINUSITIS
  5. KYOLIC [Concomitant]
     Indication: BLOOD CHOLESTEROL INCREASED
  6. ATROVENT [Concomitant]
     Indication: HYPERSENSITIVITY
  7. YAZ [Suspect]
     Indication: MENOPAUSAL SYMPTOMS
     Dosage: UNK UNK, QD
     Route: 048
     Dates: start: 20091001, end: 20091222
  8. FLONASE [Concomitant]
     Indication: HYPERSENSITIVITY
     Dosage: UNK
     Dates: start: 20000101
  9. SINGULAIR [Concomitant]
     Indication: HYPERSENSITIVITY
     Dosage: DAILY DOSE 10 MG
  10. ACIPHEX [Concomitant]
     Indication: GASTROOESOPHAGEAL REFLUX DISEASE
  11. FLONASE [Concomitant]
     Indication: SINUSITIS
  12. ZYRTEC [Concomitant]
     Indication: HYPERSENSITIVITY
     Dosage: UNK
     Dates: start: 20000101
  13. MULTI-VITAMIN [Concomitant]
     Dosage: UNK UNK, QD
  14. PRASUGREL [Concomitant]
     Indication: PRODUCT USED FOR UNKNOWN INDICATION

REACTIONS (6)
  - HYPOKINESIA [None]
  - LEUKOCYTOSIS [None]
  - ACUTE MYOCARDIAL INFARCTION [None]
  - SINUS TACHYCARDIA [None]
  - HYPERGLYCAEMIA [None]
  - EMOTIONAL DISTRESS [None]
